FAERS Safety Report 9235824 (Version 1)
Quarter: 2013Q1

REPORT INFORMATION
  Report Type: Spontaneous
  Country: US (occurrence: None)
  Receive Date: 20121031
  Receipt Date: 20121031
  Transmission Date: 20140127
  Serious: No
  Sender: FDA-Public Use
  Company Number: PHEH2012US011934

PATIENT
  Age: 52 Year
  Sex: Female
  Weight: 53.1 kg

DRUGS (1)
  1. GILENYA [Suspect]
     Indication: MULTIPLE SCLEROSIS
     Route: 048
     Dates: start: 20120612

REACTIONS (6)
  - Fatigue [None]
  - Visual acuity reduced [None]
  - Feeling abnormal [None]
  - Disturbance in attention [None]
  - Pain [None]
  - Headache [None]
